FAERS Safety Report 6809399-X (Version None)
Quarter: 2010Q2

REPORT INFORMATION
  Report Type: 
  Country: None (occurrence: None)
  Receive Date: 20100630
  Receipt Date: 20100311
  Transmission Date: 20101027
  Serious: Yes (Other)
  Sender: FDA-Public Use
  Company Number: US-ASTRAZENECA-2008UW24316

PATIENT
  Age: 569 Month
  Sex: Female
  Weight: 72.6 kg

DRUGS (9)
  1. SEROQUEL [Suspect]
     Indication: DEPRESSION
     Route: 048
     Dates: start: 20000714, end: 20050911
  2. SEROQUEL [Suspect]
     Route: 048
     Dates: start: 20000714
  3. ANAFRANIL [Concomitant]
     Dates: start: 19960101
  4. ANAFRANIL [Concomitant]
     Dates: start: 20000916
  5. ZYPREXA [Concomitant]
     Dates: start: 20000124, end: 20000506
  6. LORTAB [Concomitant]
  7. LIPITOR [Concomitant]
     Dates: start: 20001011
  8. NADOLOL [Concomitant]
     Dates: start: 20001011
  9. TRAZODONE HYDROCHLORIDE [Concomitant]
     Dates: start: 20001130

REACTIONS (3)
  - DIABETES MELLITUS [None]
  - FIBROMYALGIA [None]
  - RENAL DISORDER [None]
